FAERS Safety Report 7984394-6 (Version None)
Quarter: 2011Q4

REPORT INFORMATION
  Report Type: 
  Country: None (occurrence: None)
  Receive Date: 20111216
  Receipt Date: 20111206
  Transmission Date: 20120403
  Serious: Yes (Hospitalization)
  Sender: FDA-Public Use
  Company Number: US-PURDUE-USA-2011-0074570

PATIENT
  Sex: Male

DRUGS (1)
  1. OXYCONTIN [Suspect]
     Indication: PRODUCT USED FOR UNKNOWN INDICATION
     Dosage: 80 MG, BID
     Route: 048

REACTIONS (4)
  - PANCREATIC DISORDER [None]
  - DRUG EFFECT DECREASED [None]
  - WRONG TECHNIQUE IN DRUG USAGE PROCESS [None]
  - SMALL INTESTINAL OBSTRUCTION [None]
